FAERS Safety Report 9167186 (Version 3)
Quarter: 2013Q3

REPORT INFORMATION
  Report Type: Spontaneous
  Country: US (occurrence: US)
  Receive Date: 20130318
  Receipt Date: 20130731
  Transmission Date: 20140515
  Serious: Yes (Hospitalization)
  Sender: FDA-Public Use
  Company Number: US-BIOGENIDEC-2013BI023273

PATIENT
  Age: 46 Year
  Sex: Female

DRUGS (11)
  1. TYSABRI [Suspect]
     Indication: MULTIPLE SCLEROSIS
     Route: 042
     Dates: start: 20111215
  2. AVONEX [Concomitant]
     Indication: MULTIPLE SCLEROSIS
     Route: 030
  3. GABAPENTIN [Concomitant]
  4. REQUIP [Concomitant]
  5. TOPIRAMATE [Concomitant]
  6. VENLAFAXINE [Concomitant]
  7. PRAVASTATIN [Concomitant]
  8. PANTOPRAZOLE [Concomitant]
  9. ACTOS [Concomitant]
  10. UROCIT-K [Concomitant]
  11. LYRICA [Concomitant]

REACTIONS (3)
  - Sinusitis [Recovered/Resolved]
  - Tooth infection [Recovered/Resolved]
  - Upper respiratory tract infection [Recovered/Resolved]
